FAERS Safety Report 9132634 (Version 1)
Quarter: 2013Q1

REPORT INFORMATION
  Report Type: Spontaneous
  Country: US (occurrence: US)
  Receive Date: 20130301
  Receipt Date: 20130301
  Transmission Date: 20140127
  Serious: No
  Sender: FDA-Public Use
  Company Number: US-009507513-1302USA011110

PATIENT
  Age: 66 None
  Sex: Female

DRUGS (1)
  1. STROMECTOL [Suspect]
     Indication: LICE INFESTATION
     Dosage: UNK
     Route: 048
     Dates: start: 20130215, end: 20130215

REACTIONS (4)
  - Chest discomfort [Not Recovered/Not Resolved]
  - Wheezing [Not Recovered/Not Resolved]
  - Blister [Unknown]
  - Therapeutic response decreased [Unknown]
